FAERS Safety Report 6226594-1 (Version None)
Quarter: 2009Q2

REPORT INFORMATION
  Report Type: 
  Country: None (occurrence: None)
  Receive Date: 20090612
  Receipt Date: 20090604
  Transmission Date: 20091009
  Serious: Yes (Other)
  Sender: FDA-Public Use
  Company Number: CA-JNJFOC-20090501812

PATIENT
  Sex: Male
  Weight: 66 kg

DRUGS (8)
  1. RISPERDAL [Suspect]
     Indication: CATATONIA
     Route: 065
  2. ATIVAN [Interacting]
     Indication: CATATONIA
     Route: 065
  3. PREVACID [Interacting]
     Indication: OESOPHAGITIS
     Route: 065
  4. MONTELUKAST [Interacting]
     Indication: OESOPHAGITIS
     Route: 065
  5. LAXATIVE [Interacting]
     Indication: CONSTIPATION
     Route: 065
  6. MULTI-VITAMINS [Interacting]
     Indication: DRUG USE FOR UNKNOWN INDICATION
     Route: 065
  7. ACETAMINOPHEN [Interacting]
     Indication: PAIN
     Route: 065
  8. FUSIDIC ACID [Interacting]
     Indication: OPEN WOUND
     Route: 061

REACTIONS (4)
  - DRUG INTERACTION [None]
  - OFF LABEL USE [None]
  - VOMITING [None]
  - WEIGHT DECREASED [None]
